FAERS Safety Report 21651585 (Version 2)
Quarter: 2023Q1

REPORT INFORMATION
  Report Type: Spontaneous
  Country: US (occurrence: None)
  Receive Date: 20221128
  Receipt Date: 20230102
  Transmission Date: 20230417
  Serious: No
  Sender: FDA-Public Use
  Company Number: 2022A386770

PATIENT
  Age: 22173 Day
  Sex: Male
  Weight: 158.8 kg

DRUGS (1)
  1. FASENRA [Suspect]
     Active Substance: BENRALIZUMAB
     Indication: Asthma
     Route: 058

REACTIONS (2)
  - Diabetes mellitus [Unknown]
  - Device issue [Unknown]

NARRATIVE: CASE EVENT DATE: 20221121
